FAERS Safety Report 8762288 (Version 1)
Quarter: 2012Q4

REPORT INFORMATION
  Report Type: 
  Country: US (occurrence: US)
  Receive Date: 20120830
  Receipt Date: 20120830
  Transmission Date: 20130627
  Serious: Yes (Hospitalization)
  Sender: FDA-Public Use
  Company Number: US-PFIZER INC-2012211720

PATIENT
  Age: 41 Year
  Sex: Female

DRUGS (4)
  1. RAPAMUNE [Suspect]
     Dosage: UNK, 1x/day
     Route: 048
     Dates: start: 200112, end: 201208
  2. PREDNISONE [Concomitant]
     Dosage: 5 mg, 1x/day
  3. ASPIRIN [Concomitant]
     Dosage: 81 mg, 1x/day
  4. TUMS [Concomitant]
     Dosage: 750 mg, 1x/day

REACTIONS (2)
  - Pancreas transplant rejection [Unknown]
  - Off label use [Unknown]
